FAERS Safety Report 7828819-5 (Version None)
Quarter: 2011Q4

REPORT INFORMATION
  Report Type: 
  Country: None (occurrence: None)
  Receive Date: 20111020
  Receipt Date: 20111011
  Transmission Date: 20120403
  Serious: Yes (Life-Threatening, Hospitalization, Other)
  Sender: FDA-Public Use
  Company Number: US-BAYER-2011-099326

PATIENT
  Age: 17 Year
  Sex: Female

DRUGS (1)
  1. IBUPROFEN [Suspect]
     Indication: PRODUCT USED FOR UNKNOWN INDICATION
     Dosage: 56 G, ONCE

REACTIONS (5)
  - ENCEPHALOPATHY [None]
  - CONVULSION [None]
  - ATAXIA [None]
  - HYPERNATRAEMIA [None]
  - ACIDOSIS [None]
